FAERS Safety Report 13778409 (Version 1)
Quarter: 2017Q3

REPORT INFORMATION
  Report Type: Report from Study
  Country: US (occurrence: US)
  Receive Date: 20170721
  Receipt Date: 20170721
  Transmission Date: 20171127
  Serious: Yes (Disabling, Other)
  Sender: FDA-Public Use
  Company Number: US-009507513-1707USA006320

PATIENT
  Sex: Female

DRUGS (1)
  1. FOSAMAX [Suspect]
     Active Substance: ALENDRONATE SODIUM
     Dosage: UNK
     Route: 048
     Dates: start: 201701

REACTIONS (4)
  - Drug ineffective [Unknown]
  - Bone operation [Unknown]
  - Musculoskeletal discomfort [Unknown]
  - Tendon operation [Unknown]

NARRATIVE: CASE EVENT DATE: 2017
